FAERS Safety Report 5869974-6 (Version None)
Quarter: 2008Q3

REPORT INFORMATION
  Report Type: 
  Country: None (occurrence: None)
  Receive Date: 20080904
  Receipt Date: 20080904
  Transmission Date: 20090109
  Serious: Yes (Hospitalization)
  Sender: FDA-Public Use
  Company Number: PHEH1996US01021

PATIENT
  Sex: Female
  Weight: 62.5 kg

DRUGS (9)
  1. SANDIMMUNE [Suspect]
     Route: 048
     Dates: start: 19950920
  2. PREDNISONE TAB [Concomitant]
  3. IMURAN [Concomitant]
  4. DIGOXIN [Concomitant]
  5. ZOVIRAX [Concomitant]
  6. PEPCID [Concomitant]
  7. PRAVACHOL [Concomitant]
  8. NOROXIN [Suspect]
  9. PHENAZOPYRIDINE HCL TAB [Concomitant]

REACTIONS (4)
  - DRUG INTOLERANCE [None]
  - NAUSEA [None]
  - URINARY TRACT INFECTION [None]
  - VOMITING [None]
